FAERS Safety Report 23353964 (Version 1)
Quarter: 2024Q1

REPORT INFORMATION
  Report Type: Spontaneous
  Country: US (occurrence: US)
  Receive Date: 20240101
  Receipt Date: 20240101
  Transmission Date: 20240410
  Serious: Yes (Other)
  Sender: FDA-Public Use
  Company Number: US-FMCRTG-FMC-2312-001452

PATIENT
  Sex: Female
  Weight: 43 kg

DRUGS (3)
  1. DELFLEX WITH DEXTROSE 1.5% LOW MAGNESIUM LOW CALCIUM [Suspect]
     Active Substance: CALCIUM CHLORIDE\DEXTROSE\MAGNESIUM CHLORIDE\SODIUM CHLORIDE\SODIUM LACTATE
     Indication: End stage renal disease
     Dosage: 7 DAYS-A-WEEK, 1.5%, 2.5%, 4.25% DIALYSATE SOLUTIONS, EXCHANGES = 6, FILL VOLUME = 1400 ML, DWELL TI
     Route: 033
  2. DELFLEX WITH DEXTROSE 2.5% LOW MAGNESIUM LOW CALCIUM [Suspect]
     Active Substance: CALCIUM CHLORIDE\DEXTROSE\MAGNESIUM CHLORIDE\SODIUM CHLORIDE\SODIUM LACTATE
     Indication: End stage renal disease
     Dosage: 7 DAYS-A-WEEK, 1.5%, 2.5%, 4.25% DIALYSATE SOLUTIONS, EXCHANGES = 6, FILL VOLUME = 1400 ML, DWELL TI
     Route: 033
  3. DELFLEX WITH DEXTROSE 4.25% LOW MAGNESIUM LOW CALCIUM [Suspect]
     Active Substance: CALCIUM CHLORIDE\DEXTROSE\MAGNESIUM CHLORIDE\SODIUM CHLORIDE\SODIUM LACTATE
     Indication: End stage renal disease
     Dosage: 7 DAYS-A-WEEK, 1.5%, 2.5%, 4.25% DIALYSATE SOLUTIONS, EXCHANGES = 6, FILL VOLUME = 1400 ML, DWELL TI
     Route: 033

REACTIONS (1)
  - Peritonitis bacterial [Recovering/Resolving]
